FAERS Safety Report 7363097-5 (Version None)
Quarter: 2011Q1

REPORT INFORMATION
  Report Type: 
  Country: None (occurrence: None)
  Receive Date: 20110321
  Receipt Date: 20110314
  Transmission Date: 20110831
  Serious: Yes (Hospitalization, Other)
  Sender: FDA-Public Use
  Company Number: US-TEVA-271533USA

PATIENT
  Sex: Female

DRUGS (2)
  1. INTERFERON BETA NOS [Suspect]
     Indication: MULTIPLE SCLEROSIS
     Route: 030
     Dates: start: 20070401
  2. COPAXONE [Suspect]
     Indication: MULTIPLE SCLEROSIS
     Route: 058
     Dates: start: 20000101, end: 20060101

REACTIONS (1)
  - MULTIPLE SCLEROSIS RELAPSE [None]
